FAERS Safety Report 17099754 (Version 1)
Quarter: 2019Q4

REPORT INFORMATION
  Report Type: Spontaneous
  Country: DE (occurrence: DE)
  Receive Date: 20191202
  Receipt Date: 20191202
  Transmission Date: 20200122
  Serious: Yes (Other)
  Sender: FDA-Public Use
  Company Number: DE-B.I. PHARMACEUTICALS,INC./RIDGEFIELD-2019-BI-117242

PATIENT
  Age: 80 Year
  Sex: Male

DRUGS (4)
  1. EXFORGE [Concomitant]
     Active Substance: AMLODIPINE BESYLATE\VALSARTAN
     Indication: HYPERTENSION
     Dosage: UNSPECIFIED DOSE AND FREQUENCY.
     Route: 065
     Dates: start: 2019, end: 2019
  2. KINZALMONO [Suspect]
     Active Substance: TELMISARTAN
     Indication: HYPERTENSION
     Dosage: KINZALMONO 20 MG WAS TOLERATED WELL WHEN TAKEN MANY YEARS AGO
     Route: 065
  3. KINZALMONO [Suspect]
     Active Substance: TELMISARTAN
     Dosage: UNSPECIFIED DOSE AND FREQUENCY
     Route: 065
     Dates: start: 2019, end: 2019
  4. PROPICILLIN [Suspect]
     Active Substance: PROPICILLIN
     Indication: PRODUCT USED FOR UNKNOWN INDICATION
     Dosage: UNSPECIFIED DOSE AND FREQUENCY
     Route: 065

REACTIONS (7)
  - Dizziness postural [Recovered/Resolved]
  - Fibromyalgia [Recovered/Resolved]
  - Extrasystoles [Recovered/Resolved]
  - Intestinal haemorrhage [Unknown]
  - Polyneuropathy [Recovered/Resolved]
  - Gastric disorder [Recovered/Resolved]
  - Dyspepsia [Recovered/Resolved]

NARRATIVE: CASE EVENT DATE: 2019
